FAERS Safety Report 10915988 (Version 2)
Quarter: 2015Q2

REPORT INFORMATION
  Report Type: Spontaneous
  Country: US (occurrence: US)
  Receive Date: 20150316
  Receipt Date: 20150626
  Transmission Date: 20150821
  Serious: Yes (Hospitalization)
  Sender: FDA-Public Use
  Company Number: US-BAYER-2015-036936

PATIENT
  Age: 25 Year
  Sex: Female
  Weight: 58.96 kg

DRUGS (4)
  1. MIRENA [Suspect]
     Active Substance: LEVONORGESTREL
     Indication: CONTRACEPTION
     Dosage: 20 MCG/24HR, CONT
     Route: 015
     Dates: start: 20101126, end: 20101130
  2. HYDROCODONE [Concomitant]
     Active Substance: HYDROCODONE
     Indication: FIBROMYALGIA
     Dosage: UNK
     Dates: start: 2008
  3. TYLENOL [Concomitant]
     Active Substance: ACETAMINOPHEN
  4. XANAX [Concomitant]
     Active Substance: ALPRAZOLAM
     Indication: ANXIETY
     Dosage: UNK
     Dates: start: 2009

REACTIONS (7)
  - Injury [None]
  - Uterine perforation [None]
  - Abdominal pain [None]
  - Procedural pain [Not Recovered/Not Resolved]
  - Pain [None]
  - Genital haemorrhage [None]
  - Infertility female [None]

NARRATIVE: CASE EVENT DATE: 201011
